FAERS Safety Report 9509958 (Version 2)
Quarter: 2013Q3

REPORT INFORMATION
  Report Type: Spontaneous
  Country: US (occurrence: US)
  Receive Date: 20130909
  Receipt Date: 20130909
  Transmission Date: 20140515
  Serious: No
  Sender: FDA-Public Use
  Company Number: US-BRISTOL-MYERS SQUIBB COMPANY-18788067

PATIENT
  Age: 72 Year
  Sex: Male
  Weight: 90.7 kg

DRUGS (5)
  1. ABILIFY TABS 2 MG [Suspect]
     Indication: BIPOLAR DISORDER
     Dosage: 1-2MG ALSO
     Route: 048
  2. ABILIFY TABS 2 MG [Suspect]
     Indication: GENERALISED ANXIETY DISORDER
     Dosage: 1-2MG ALSO
     Route: 048
  3. LEXAPRO [Suspect]
  4. CARBAMAZEPINE [Suspect]
  5. KLONOPIN [Suspect]

REACTIONS (4)
  - Rash [Recovered/Resolved]
  - Feeling abnormal [Unknown]
  - Influenza like illness [Unknown]
  - Fatigue [Recovered/Resolved]
